FAERS Safety Report 25681767 (Version 3)
Quarter: 2025Q4

REPORT INFORMATION
  Report Type: Spontaneous
  Country: CA (occurrence: CA)
  Receive Date: 20250814
  Receipt Date: 20251009
  Transmission Date: 20260118
  Serious: Yes (Other)
  Sender: PFIZER
  Company Number: CA-PFIZER INC-202400238332

PATIENT
  Age: 53 Year
  Sex: Female

DRUGS (4)
  1. RUXIENCE [Suspect]
     Active Substance: RITUXIMAB-PVVR
     Indication: Granulomatosis with polyangiitis
     Dosage: 1 DF, 1G DAY AND 15, THEN 1G EVERY 5 MONTHS
     Route: 042
     Dates: start: 20240905
  2. RUXIENCE [Suspect]
     Active Substance: RITUXIMAB-PVVR
     Dosage: 1 DF, 1G DAY AND 15, THEN 1G EVERY 5 MONTHS
     Route: 042
     Dates: start: 20250217
  3. RUXIENCE [Suspect]
     Active Substance: RITUXIMAB-PVVR
     Dosage: 500 MG, EVERY 6 MONTH, NOT STARTED YET
     Route: 042
  4. SOLU-MEDROL [Concomitant]
     Active Substance: METHYLPREDNISOLONE SODIUM SUCCINATE
     Indication: Premedication
     Dosage: 50 MG
     Route: 042

REACTIONS (2)
  - Breast cancer [Unknown]
  - Off label use [Unknown]
